FAERS Safety Report 8096930-2 (Version None)
Quarter: 2012Q1

REPORT INFORMATION
  Report Type: 
  Country: None (occurrence: None)
  Receive Date: 20120129
  Receipt Date: 20111114
  Transmission Date: 20120608
  Serious: No
  Sender: FDA-Public Use
  Company Number: US-ABBOTT-11P-163-0874571-00

PATIENT
  Sex: Female

DRUGS (8)
  1. OMEGA 369 WITH FISH OIL [Concomitant]
     Indication: SUPPLEMENTATION THERAPY
  2. VITAMIN B-12 [Concomitant]
     Indication: SUPPLEMENTATION THERAPY
  3. METHOTREXATE [Concomitant]
     Indication: RHEUMATOID ARTHRITIS
     Dosage: ON MONDAYS
  4. MULTI-VITAMINS [Concomitant]
     Indication: VITAMIN SUPPLEMENTATION
  5. FOLIC ACID [Concomitant]
     Indication: VITAMIN SUPPLEMENTATION
  6. HUMIRA [Suspect]
     Indication: RHEUMATOID ARTHRITIS
     Dates: start: 20060101, end: 20100101
  7. HUMIRA [Suspect]
     Dates: start: 20100101
  8. MOBIC [Concomitant]
     Indication: RHEUMATOID ARTHRITIS

REACTIONS (2)
  - DYSPHONIA [None]
  - DYSPNOEA [None]
